FAERS Safety Report 12480075 (Version 1)
Quarter: 2016Q2

REPORT INFORMATION
  Report Type: Spontaneous
  Country: US (occurrence: US)
  Receive Date: 20160620
  Receipt Date: 20160620
  Transmission Date: 20160815
  Serious: No
  Sender: FDA-Public Use
  Company Number: US-JNJFOC-20160427153

PATIENT
  Sex: Female
  Weight: 90.72 kg

DRUGS (9)
  1. MOTRIN [Concomitant]
     Active Substance: IBUPROFEN
     Indication: ARTHRALGIA
     Route: 048
  2. REMICADE [Suspect]
     Active Substance: INFLIXIMAB
     Indication: RHEUMATOID ARTHRITIS
     Route: 042
     Dates: end: 2015
  3. ZANTAC [Concomitant]
     Active Substance: RANITIDINE HYDROCHLORIDE
     Indication: DYSPEPSIA
     Route: 065
  4. PROTONIX [Concomitant]
     Active Substance: PANTOPRAZOLE SODIUM
     Indication: DYSPEPSIA
     Route: 048
  5. CYMBALTA [Concomitant]
     Active Substance: DULOXETINE HYDROCHLORIDE
     Indication: BIPOLAR DISORDER
     Dosage: SHE DOES NOT ALWAYS TAKE IT. SOMETIMES FORGOTS TO TAKE AND SOMETIMES SHE ONLY TAKES ONCE PER DAY
     Route: 048
  6. REMICADE [Suspect]
     Active Substance: INFLIXIMAB
     Indication: RHEUMATOID ARTHRITIS
     Route: 042
     Dates: end: 201603
  7. PERCOCET [Concomitant]
     Active Substance: ACETAMINOPHEN\OXYCODONE HYDROCHLORIDE
     Indication: ARTHRALGIA
     Route: 048
  8. VICODIN [Concomitant]
     Active Substance: ACETAMINOPHEN\HYDROCODONE BITARTRATE
     Indication: ARTHRALGIA
     Route: 065
  9. GABAPENTIN. [Concomitant]
     Active Substance: GABAPENTIN
     Indication: RHEUMATOID ARTHRITIS
     Dosage: SHE TOOK IT LAST NIGHT BECAUSE HER LEGS WERE KILLING HER. IT DOES HELP.
     Route: 065

REACTIONS (4)
  - Off label use [Unknown]
  - Drug effect incomplete [Unknown]
  - Product use issue [Unknown]
  - Fungal infection [Unknown]

NARRATIVE: CASE EVENT DATE: 2015
